FAERS Safety Report 8599265-4 (Version None)
Quarter: 2012Q3

REPORT INFORMATION
  Report Type: 
  Country: None (occurrence: None)
  Receive Date: 20120816
  Receipt Date: 20120307
  Transmission Date: 20120928
  Serious: No
  Sender: FDA-Public Use
  Company Number: US-AMGEN-USASP2012015192

PATIENT
  Age: 60 Year
  Sex: Female
  Weight: 51.7 kg

DRUGS (5)
  1. RIBAVIRIN [Concomitant]
     Indication: HEPATITIS C
     Dosage: 200 MG, UNK
     Dates: start: 20111101
  2. IMITREX [Concomitant]
     Indication: MIGRAINE
     Dosage: 50 MG, UNK
     Route: 048
  3. PROCRIT [Suspect]
     Indication: ANAEMIA
     Dosage: 40000 IU, QWK
     Route: 058
     Dates: start: 20120101
  4. NEUPOGEN [Suspect]
     Indication: ANAEMIA
     Dosage: 300 MUG, QWK
     Route: 058
     Dates: start: 20111201
  5. RITALIN [Concomitant]
     Indication: ATTENTION DEFICIT/HYPERACTIVITY DISORDER
     Dosage: 20 MG, QD

REACTIONS (4)
  - MIGRAINE [None]
  - ABNORMAL LOSS OF WEIGHT [None]
  - HAEMOGLOBIN ABNORMAL [None]
  - RASH [None]
